FAERS Safety Report 4322064-6 (Version None)
Quarter: 2004Q1

REPORT INFORMATION
  Report Type: 
  Country: None (occurrence: None)
  Receive Date: 20040319
  Receipt Date: 20040301
  Transmission Date: 20041129
  Serious: Yes (Hospitalization)
  Sender: FDA-Public Use
  Company Number: APP200400283 (0)

PATIENT
  Age: 37 Year
  Sex: Female

DRUGS (2)
  1. PROFASI HP [Suspect]
     Indication: INFERTILITY
  2. MENOTROPINS [Suspect]
     Indication: INFERTILITY

REACTIONS (7)
  - BASILAR ARTERY OCCLUSION [None]
  - CEREBRAL INFARCTION [None]
  - COAGULOPATHY [None]
  - COMA [None]
  - HAEMATOCRIT INCREASED [None]
  - OVARIAN HYPERSTIMULATION SYNDROME [None]
  - RED BLOOD CELL COUNT INCREASED [None]
